FAERS Safety Report 4460378-X (Version None)
Quarter: 2004Q3

REPORT INFORMATION
  Report Type: 
  Country: None (occurrence: None)
  Receive Date: 20040928
  Receipt Date: 20040421
  Transmission Date: 20050211
  Serious: No
  Sender: FDA-Public Use
  Company Number: US-GLAXOSMITHKLINE-A0507943A

PATIENT
  Age: 52 Year
  Sex: Female

DRUGS (5)
  1. SEREVENT [Suspect]
     Indication: ASTHMA
     Dosage: 1PUFF TWICE PER DAY
     Route: 055
     Dates: start: 20041201
  2. PREMARIN [Concomitant]
  3. AVANDIA [Concomitant]
  4. XANAX [Concomitant]
  5. METFORMIN HCL [Concomitant]

REACTIONS (1)
  - HEART RATE INCREASED [None]
